FAERS Safety Report 9858810 (Version 2)
Quarter: 2014Q1

REPORT INFORMATION
  Report Type: Spontaneous
  Country: US (occurrence: US)
  Receive Date: 20140131
  Receipt Date: 20140210
  Transmission Date: 20141002
  Serious: Yes (Hospitalization, Other)
  Sender: FDA-Public Use
  Company Number: US-BAXTER-2014BAX003981

PATIENT
  Age: 32 Year
  Sex: Female

DRUGS (3)
  1. DIANEAL LOW CALCIUM [Suspect]
     Indication: RENAL FAILURE CHRONIC
     Route: 033
  2. SENSIPAR [Suspect]
     Indication: BLOOD CALCIUM INCREASED
     Route: 048
     Dates: start: 20140108
  3. SENSIPAR [Suspect]
     Indication: BLOOD PARATHYROID HORMONE INCREASED

REACTIONS (2)
  - Blood calcium increased [Recovering/Resolving]
  - Blood parathyroid hormone increased [Recovering/Resolving]
